FAERS Safety Report 6619302-3 (Version None)
Quarter: 2010Q1

REPORT INFORMATION
  Report Type: 
  Country: None (occurrence: None)
  Receive Date: 20100303
  Receipt Date: 20100216
  Transmission Date: 20100710
  Serious: Yes (Death)
  Sender: FDA-Public Use
  Company Number: AUR-APL-2010-00459

PATIENT
  Age: 3 Month
  Sex: Male
  Weight: 3.2 kg

DRUGS (5)
  1. ZIDOVUDINE [Suspect]
     Indication: HIV INFECTION
     Dosage: TRANSPLACEN
  2. COMBIVIR [Suspect]
     Indication: HIV INFECTION
     Dosage: TRANSPLACEN
     Route: 064
  3. KALETRA [Suspect]
     Indication: HIV INFECTION
     Dosage: TRANSPLACENTAL
     Route: 064
  4. VIRAMUNE [Suspect]
     Indication: HIV INFECTION
     Dosage: TRANSPLACENTAL
     Route: 064
  5. SEPTRIN [Concomitant]

REACTIONS (3)
  - CAESAREAN SECTION [None]
  - MATERNAL DRUGS AFFECTING FOETUS [None]
  - MITOCHONDRIAL TOXICITY [None]
